FAERS Safety Report 26073020 (Version 1)
Quarter: 2025Q4

REPORT INFORMATION
  Report Type: Report from Study
  Country: EU (occurrence: EU)
  Receive Date: 20251121
  Receipt Date: 20251121
  Transmission Date: 20260118
  Serious: Yes (Hospitalization, Other)
  Sender: ALEXION PHARMACEUTICALS
  Company Number: EU-AstraZeneca-CH-00993971A

PATIENT
  Sex: Male

DRUGS (1)
  1. DANICOPAN [Suspect]
     Active Substance: DANICOPAN
     Indication: Emphysematous pyelonephritis
     Dosage: UNK
     Route: 065

REACTIONS (2)
  - Hepatic enzyme increased [Not Recovered/Not Resolved]
  - Biliary tract disorder [Not Recovered/Not Resolved]
